FAERS Safety Report 15035499 (Version 14)
Quarter: 2025Q2

REPORT INFORMATION
  Report Type: Report from Study
  Country: CA (occurrence: CA)
  Receive Date: 20180620
  Receipt Date: 20250409
  Transmission Date: 20250716
  Serious: Yes (Other)
  Sender: ROCHE
  Company Number: CA-ROCHE-1954173

PATIENT
  Age: 55 Year
  Sex: Female

DRUGS (27)
  1. RITUXAN [Suspect]
     Active Substance: RITUXIMAB
     Indication: Rheumatoid arthritis
     Route: 042
     Dates: start: 20170606
  2. RITUXAN [Suspect]
     Active Substance: RITUXIMAB
     Route: 042
  3. RITUXAN [Suspect]
     Active Substance: RITUXIMAB
     Route: 042
  4. RITUXAN [Suspect]
     Active Substance: RITUXIMAB
     Route: 042
  5. RITUXAN [Suspect]
     Active Substance: RITUXIMAB
     Route: 042
  6. RITUXAN [Suspect]
     Active Substance: RITUXIMAB
     Route: 042
  7. METHOTREXATE [Concomitant]
     Active Substance: METHOTREXATE
  8. ATORVASTATIN [Concomitant]
     Active Substance: ATORVASTATIN
  9. MINERALS\VITAMINS [Concomitant]
     Active Substance: MINERALS\VITAMINS
  10. VOLTAREN [Concomitant]
     Active Substance: DICLOFENAC SODIUM
  11. FOLIC ACID [Concomitant]
     Active Substance: FOLIC ACID
  12. TRAMADOL HYDROCHLORIDE [Concomitant]
     Active Substance: TRAMADOL HYDROCHLORIDE
  13. PREDNISONE [Concomitant]
     Active Substance: PREDNISONE
  14. ASPIRIN [Concomitant]
     Active Substance: ASPIRIN
  15. HYDROCHLOROTHIAZIDE\VALSARTAN [Concomitant]
     Active Substance: HYDROCHLOROTHIAZIDE\VALSARTAN
  16. BENADRYL [Concomitant]
     Active Substance: DIPHENHYDRAMINE HYDROCHLORIDE
     Indication: Premedication
     Route: 048
     Dates: start: 20180627
  17. DIPHENHYDRAMINE [Concomitant]
     Active Substance: DIPHENHYDRAMINE
     Indication: Premedication
     Route: 042
  18. ACETAMINOPHEN [Concomitant]
     Active Substance: ACETAMINOPHEN
     Indication: Premedication
     Route: 048
  19. METHYLPREDNISOLONE [Concomitant]
     Active Substance: METHYLPREDNISOLONE
     Indication: Premedication
     Route: 042
  20. SOLU-MEDROL [Concomitant]
     Active Substance: METHYLPREDNISOLONE SODIUM SUCCINATE
     Indication: Premedication
     Route: 042
     Dates: start: 20180627
  21. ULTRAM [Concomitant]
     Active Substance: TRAMADOL HYDROCHLORIDE
  22. SYSTANE ULTRA [Concomitant]
     Active Substance: POLYETHYLENE GLYCOL 400\PROPYLENE GLYCOL
  23. VENLAFAXINE [Concomitant]
     Active Substance: VENLAFAXINE HYDROCHLORIDE
     Indication: Product used for unknown indication
  24. PERINDOPRIL [Concomitant]
     Active Substance: PERINDOPRIL
     Indication: Hypertension
  25. SULFASALAZINE [Concomitant]
     Active Substance: SULFASALAZINE
  26. CELEBREX [Concomitant]
     Active Substance: CELECOXIB
  27. ALLOPURINOL [Concomitant]
     Active Substance: ALLOPURINOL

REACTIONS (29)
  - Blood pressure increased [Unknown]
  - Feeling hot [Unknown]
  - Infusion related reaction [Unknown]
  - Erythema [Unknown]
  - Fatigue [Not Recovered/Not Resolved]
  - Nausea [Unknown]
  - Pruritus [Unknown]
  - Musculoskeletal stiffness [Unknown]
  - Peripheral swelling [Unknown]
  - Headache [Unknown]
  - Episcleritis [Unknown]
  - Bursitis [Unknown]
  - Anxiety [Unknown]
  - Insomnia [Unknown]
  - Infusion related reaction [Unknown]
  - Oxygen saturation decreased [Unknown]
  - Chills [Unknown]
  - Dizziness [Recovered/Resolved]
  - Dry mouth [Recovered/Resolved]
  - Dyspnoea [Recovered/Resolved]
  - Palpitations [Recovered/Resolved]
  - Headache [Recovered/Resolved]
  - Respiratory tract infection [Unknown]
  - Hypersensitivity [Recovered/Resolved]
  - Dyspnoea [Recovered/Resolved]
  - Onychomycosis [Unknown]
  - Blood pressure systolic increased [Unknown]
  - Alopecia [Unknown]
  - Vascular access site discomfort [Unknown]

NARRATIVE: CASE EVENT DATE: 20170606
